FAERS Safety Report 10885719 (Version 1)
Quarter: 2015Q1

REPORT INFORMATION
  Report Type: Spontaneous
  Country: IT (occurrence: IT)
  Receive Date: 20150304
  Receipt Date: 20150304
  Transmission Date: 20150721
  Serious: Yes (Other)
  Sender: FDA-Public Use
  Company Number: IT-WATSON-2015-04417

PATIENT
  Age: 69 Year
  Sex: Male

DRUGS (4)
  1. VIVIN C                            /00346701/ [Concomitant]
     Indication: ANTICOAGULANT THERAPY
     Dosage: 1590 MG (3 TABLETS EVERY WEEK)
  2. RAPAFLO [Suspect]
     Active Substance: SILODOSIN
     Indication: NOCTURIA
     Dosage: 8 MG, DAILY
     Route: 048
     Dates: start: 20141202, end: 20150102
  3. UNIPRIL                            /00885601/ [Concomitant]
     Indication: ESSENTIAL HYPERTENSION
     Dosage: 5 MG, UNKNOWN
     Route: 048
  4. NORVASC [Concomitant]
     Active Substance: AMLODIPINE BESYLATE
     Indication: PRODUCT USED FOR UNKNOWN INDICATION
     Dosage: 5 MG ON THE AFTERNOON AND TWO DAYS ON THE EVENING
     Route: 065

REACTIONS (6)
  - Purpura [Recovering/Resolving]
  - Blister [Recovering/Resolving]
  - Oedema [Recovering/Resolving]
  - Pruritus [Recovering/Resolving]
  - Chills [Recovering/Resolving]
  - Erythema [Recovering/Resolving]

NARRATIVE: CASE EVENT DATE: 20141230
